FAERS Safety Report 5356591-X (Version None)
Quarter: 2007Q2

REPORT INFORMATION
  Report Type: 
  Country: None (occurrence: None)
  Receive Date: 20070614
  Receipt Date: 20070531
  Transmission Date: 20071010
  Serious: Yes (Other)
  Sender: FDA-Public Use
  Company Number: PHBS2007IT09464

PATIENT
  Age: 19 Year
  Sex: Female

DRUGS (3)
  1. SANDIMMUNE [Suspect]
     Indication: TRANSPLANT
     Dosage: 175 MG/DAY
     Route: 048
     Dates: start: 20040428, end: 20070527
  2. AZATHIOPRINE [Concomitant]
     Indication: TRANSPLANT
     Dosage: 37 MG/DAY
     Route: 048
  3. LUCEN [Concomitant]
     Dosage: 20 MG/DAY
     Route: 048

REACTIONS (1)
  - MACULAR OEDEMA [None]
